FAERS Safety Report 21467879 (Version 3)
Quarter: 2022Q4

REPORT INFORMATION
  Report Type: Spontaneous
  Country: US (occurrence: US)
  Receive Date: 20221017
  Receipt Date: 20221206
  Transmission Date: 20230113
  Serious: No
  Sender: FDA-Public Use
  Company Number: US-PFIZER INC-PV202200041272

PATIENT
  Age: 62 Year
  Sex: Female
  Weight: 69.85 kg

DRUGS (5)
  1. RAPAMUNE [Suspect]
     Active Substance: SIROLIMUS
     Indication: Lymphangioleiomyomatosis
     Dosage: 1 MG, 2X/DAY
  2. RAPAMUNE [Suspect]
     Active Substance: SIROLIMUS
     Dosage: 2 MG, DAILY
     Route: 048
     Dates: start: 2017
  3. RAPAMUNE [Suspect]
     Active Substance: SIROLIMUS
     Dosage: 3 MG, DAILY
  4. RAPAMUNE [Suspect]
     Active Substance: SIROLIMUS
     Dosage: 3 MG, DAILY
  5. RAPAMUNE [Suspect]
     Active Substance: SIROLIMUS
     Dosage: 3 MG, DAILY

REACTIONS (14)
  - Pulmonary function test decreased [Recovering/Resolving]
  - Stomatitis [Recovered/Resolved]
  - Blood cholesterol increased [Unknown]
  - Hypertension [Unknown]
  - Joint swelling [Unknown]
  - Peripheral swelling [Unknown]
  - Skin disorder [Recovered/Resolved]
  - Skin lesion [Recovered/Resolved]
  - Diarrhoea [Unknown]
  - Acne [Unknown]
  - Off label use [Unknown]
  - Intentional product misuse [Unknown]
  - Product use issue [Unknown]
  - Wrong technique in product usage process [Unknown]
